FAERS Safety Report 23865018 (Version 1)
Quarter: 2024Q2

REPORT INFORMATION
  Report Type: Report from Study
  Country: IN (occurrence: IN)
  Receive Date: 20240516
  Receipt Date: 20240516
  Transmission Date: 20240716
  Serious: Yes (Other)
  Sender: FDA-Public Use
  Company Number: IN-CIPLA LTD.-2024IN04597

PATIENT

DRUGS (4)
  1. METOPROLOL SUCCINATE [Suspect]
     Active Substance: METOPROLOL SUCCINATE
     Indication: Product used for unknown indication
     Dosage: DOSE USED-1, FREQUENCY-1
     Route: 048
  2. TELISTA [Concomitant]
     Indication: Product used for unknown indication
     Dosage: UNK
     Route: 065
  3. TENDIA M [Concomitant]
     Indication: Product used for unknown indication
     Dosage: UNK
     Route: 065
  4. PANTACID [PANTOPRAZOLE SODIUM SESQUIHYDRATE] [Concomitant]
     Indication: Product used for unknown indication
     Dosage: UNK
     Route: 065

REACTIONS (4)
  - Blood pressure fluctuation [Not Recovered/Not Resolved]
  - Generalised oedema [Not Recovered/Not Resolved]
  - Dyspnoea exertional [Not Recovered/Not Resolved]
  - Asthenia [Not Recovered/Not Resolved]
